FAERS Safety Report 6079338-0 (Version None)
Quarter: 2009Q1

REPORT INFORMATION
  Report Type: 
  Country: None (occurrence: None)
  Receive Date: 20090216
  Receipt Date: 20090210
  Transmission Date: 20090719
  Serious: Yes (Death, Hospitalization, Disabling, Other)
  Sender: FDA-Public Use
  Company Number: PHRM2007FR01624

PATIENT
  Sex: Male

DRUGS (4)
  1. LEPONEX [Suspect]
     Indication: SCHIZOPHRENIA
     Dosage: 450-500 MG DAILY
     Dates: start: 20011201, end: 20030301
  2. LEPONEX [Suspect]
     Dosage: 400 MG/DAY
     Dates: start: 20040101, end: 20060501
  3. LEPONEX [Suspect]
     Dosage: PROGRESSIVELY INCREASED TO 400 MG/DAY
     Dates: start: 20060901
  4. LEPONEX [Suspect]
     Dosage: PROGRESSIVELY DECREASED TO 50 MG/DAY

REACTIONS (28)
  - ALCOHOL ABUSE [None]
  - CARDIAC CIRRHOSIS [None]
  - CARDIAC FAILURE [None]
  - CARDIO-RESPIRATORY ARREST [None]
  - CHLAMYDIAL INFECTION [None]
  - CONGESTIVE CARDIOMYOPATHY [None]
  - DRUG ABUSE [None]
  - DYSPNOEA [None]
  - EJECTION FRACTION DECREASED [None]
  - ELECTROMECHANICAL DISSOCIATION [None]
  - ENDOTRACHEAL INTUBATION [None]
  - FRACTURE [None]
  - HYPOTENSION [None]
  - INJURY [None]
  - LUNG DISORDER [None]
  - MECHANICAL VENTILATION [None]
  - PARAPLEGIA [None]
  - PELVIC FRACTURE [None]
  - PRODUCTIVE COUGH [None]
  - PULMONARY EMBOLISM [None]
  - PULMONARY OEDEMA [None]
  - PYREXIA [None]
  - RALES [None]
  - SEPSIS [None]
  - SPINAL FRACTURE [None]
  - SUICIDE ATTEMPT [None]
  - VENTRICULAR HYPERTROPHY [None]
  - VIRAL INFECTION [None]
